FAERS Safety Report 8620226-0 (Version None)
Quarter: 2012Q3

REPORT INFORMATION
  Report Type: 
  Country: None (occurrence: None)
  Receive Date: 20120824
  Receipt Date: 20120815
  Transmission Date: 20120928
  Serious: Yes (Other)
  Sender: FDA-Public Use
  Company Number: US-RB-043602-12

PATIENT
  Age: 73 Year
  Sex: Male

DRUGS (1)
  1. MUCINEX [Suspect]
     Indication: RESPIRATORY TRACT INFECTION
     Route: 048
     Dates: start: 20120811

REACTIONS (3)
  - EXPIRED DRUG ADMINISTERED [None]
  - HAEMOPTYSIS [None]
  - OFF LABEL USE [None]
